FAERS Safety Report 8596548-9 (Version None)
Quarter: 2012Q3

REPORT INFORMATION
  Report Type: 
  Country: None (occurrence: None)
  Receive Date: 20120815
  Receipt Date: 20120813
  Transmission Date: 20120928
  Serious: Yes (Hospitalization, Other)
  Sender: FDA-Public Use
  Company Number: US-ROXANE LABORATORIES, INC.-2011-RO-00573RO

PATIENT
  Sex: Male

DRUGS (16)
  1. LENALIDOMIDE [Suspect]
     Indication: MULTIPLE MYELOMA
     Dosage: 10 MG
     Route: 048
     Dates: start: 20110401, end: 20110405
  2. ASPIRIN [Concomitant]
     Indication: THROMBOSIS PROPHYLAXIS
     Dates: start: 20100827
  3. NEURONTIN [Concomitant]
  4. DEXAMETHASONE [Suspect]
     Indication: MULTIPLE MYELOMA
     Dosage: 40 MG
     Route: 048
     Dates: start: 20110401, end: 20110405
  5. MULTI-VITAMINS [Concomitant]
     Dates: start: 20070831
  6. SENOKOT [Concomitant]
     Dates: start: 20100717
  7. CLONAZEPAM [Concomitant]
     Dates: start: 20100916
  8. BMS833923 [Suspect]
     Indication: MULTIPLE MYELOMA
     Dosage: 90 MG
     Route: 048
     Dates: start: 20110520
  9. ATIVAN [Concomitant]
     Dates: start: 20100701
  10. CALCIUM [Concomitant]
     Dates: start: 20070831
  11. DEXAMETHASONE [Suspect]
     Route: 048
     Dates: start: 20110401
  12. NEURONTIN [Concomitant]
     Dates: start: 20100415
  13. CALCIUM AND VITAMIN D [Concomitant]
  14. LENALIDOMIDE [Suspect]
     Route: 048
     Dates: start: 20110401
  15. MAGNESIUM [Concomitant]
     Dates: start: 20100512
  16. CLONOPIN [Concomitant]

REACTIONS (5)
  - STREPTOCOCCAL BACTERAEMIA [None]
  - OTITIS MEDIA [None]
  - PYREXIA [None]
  - SINUSITIS [None]
  - NEUTROPENIA [None]
